FAERS Safety Report 17746130 (Version 2)
Quarter: 2020Q3

REPORT INFORMATION
  Report Type: Report from Study
  Country: None (occurrence: US)
  Receive Date: 20200505
  Receipt Date: 20200702
  Transmission Date: 20201102
  Serious: Yes (Other)
  Sender: FDA-Public Use
  Company Number: US-ABBVIE-20K-163-3384165-00

PATIENT
  Sex: Female
  Weight: 72.64 kg

DRUGS (3)
  1. CELEBREX [Suspect]
     Active Substance: CELECOXIB
     Indication: PAIN
     Route: 065
  2. HUMIRA [Suspect]
     Active Substance: ADALIMUMAB
     Indication: ANKYLOSING SPONDYLITIS
     Route: 058
  3. HUMIRA [Suspect]
     Active Substance: ADALIMUMAB
     Indication: RHEUMATOID ARTHRITIS

REACTIONS (14)
  - Feeling hot [Unknown]
  - Blood pressure increased [Unknown]
  - Injection site extravasation [Recovered/Resolved]
  - Impaired healing [Unknown]
  - Post procedural contusion [Recovered/Resolved]
  - Pain in extremity [Recovered/Resolved]
  - Pain [Unknown]
  - Scab [Unknown]
  - Injection site injury [Unknown]
  - Increased tendency to bruise [Unknown]
  - Contusion [Recovered/Resolved]
  - Pruritus [Unknown]
  - Post procedural haemorrhage [Unknown]
  - Haemorrhage [Unknown]

NARRATIVE: CASE EVENT DATE: 2020
